FAERS Safety Report 9969346 (Version 1)
Quarter: 2014Q1

REPORT INFORMATION
  Report Type: Spontaneous
  Country: US (occurrence: US)
  Receive Date: 20140306
  Receipt Date: 20140306
  Transmission Date: 20141002
  Serious: No
  Sender: FDA-Public Use
  Company Number: US-BIOGENIDEC-2014BI018606

PATIENT
  Age: 73 Year
  Sex: Female

DRUGS (11)
  1. TECFIDERA [Suspect]
     Indication: MULTIPLE SCLEROSIS
     Route: 048
  2. 4-AMINOPYRIDLNE [Concomitant]
  3. CIPRO [Concomitant]
  4. CITALOPRAM HYDROBROMIDE [Concomitant]
  5. LORAZEPAM [Concomitant]
  6. MECLIZINE HCL [Concomitant]
  7. METAXALONE [Concomitant]
  8. MYRBETRIQ [Concomitant]
  9. SIMVASTATIN [Concomitant]
  10. TRAMADOL-ACETAMINOPHEN [Concomitant]
  11. ZOLPIDEM TARTRATE [Concomitant]

REACTIONS (4)
  - Kidney infection [Unknown]
  - Pyrexia [Recovered/Resolved]
  - Oropharyngeal pain [Not Recovered/Not Resolved]
  - Rhinorrhoea [Not Recovered/Not Resolved]
